FAERS Safety Report 11990299 (Version 3)
Quarter: 2016Q1

REPORT INFORMATION
  Report Type: Spontaneous
  Country: JP (occurrence: JP)
  Receive Date: 20160202
  Receipt Date: 20160224
  Transmission Date: 20160526
  Serious: Yes (Hospitalization, Other)
  Sender: FDA-Public Use
  Company Number: JP-DSJP-DSJ-2016-102292AA

PATIENT

DRUGS (9)
  1. URSO [Concomitant]
     Active Substance: URSODIOL
     Dosage: 300MG/DAY
     Route: 048
  2. FEBURIC [Concomitant]
     Active Substance: FEBUXOSTAT
     Dosage: 10MG/DAY
     Route: 048
  3. SPRYCEL [Concomitant]
     Active Substance: DASATINIB
     Dosage: 20 MG, QOD
     Route: 048
  4. DIART [Concomitant]
     Active Substance: AZOSEMIDE
     Dosage: 30 MG, QD AFTER BREAKFAST
     Route: 048
  5. LIXIANA TABLETS [Suspect]
     Active Substance: EDOXABAN TOSILATE MONOHYDRATE
     Indication: EMBOLISM VENOUS
     Dosage: 30MG/DAY
     Route: 048
     Dates: start: 201505
  6. INSULIN [Concomitant]
     Active Substance: INSULIN NOS
     Dosage: 14 IU, QD BEFORE BREAKFAST
     Route: 058
  7. PREDONINE [Concomitant]
     Active Substance: PREDNISOLONE\PREDNISOLONE ACETATE\PREDNISOLONE SODIUM SUCCINATE
     Dosage: 5MG/DAY
     Route: 048
  8. LIXIANA TABLETS [Suspect]
     Active Substance: EDOXABAN TOSILATE MONOHYDRATE
     Dosage: 30MG/?
     Route: 048
     Dates: start: 20151225, end: 20160103
  9. LIXIANA TABLETS [Suspect]
     Active Substance: EDOXABAN TOSILATE MONOHYDRATE
     Dosage: 30MG/?
     Route: 048
     Dates: start: 20160109, end: 20160115

REACTIONS (3)
  - Anaemia [Not Recovered/Not Resolved]
  - Blood creatine phosphokinase increased [Not Recovered/Not Resolved]
  - Hepatic encephalopathy [Not Recovered/Not Resolved]

NARRATIVE: CASE EVENT DATE: 20151229
